FAERS Safety Report 7415774-5 (Version None)
Quarter: 2011Q2

REPORT INFORMATION
  Report Type: 
  Country: None (occurrence: None)
  Receive Date: 20110414
  Receipt Date: 20110401
  Transmission Date: 20111010
  Serious: Yes (Other)
  Sender: FDA-Public Use
  Company Number: US-JNJFOC-20110400987

PATIENT
  Sex: Male
  Weight: 81.65 kg

DRUGS (8)
  1. REMICADE [Suspect]
     Indication: CROHN'S DISEASE
     Route: 042
  2. ALLOPURINOL [Concomitant]
     Indication: GOUT
     Route: 048
  3. ASPIRIN [Concomitant]
     Indication: PROPHYLAXIS
     Route: 048
  4. BENAZEPRIL HYDROCHLORIDE [Concomitant]
     Indication: BLOOD PRESSURE
     Route: 048
  5. NEXIUM [Concomitant]
     Indication: GASTROOESOPHAGEAL REFLUX DISEASE
     Route: 048
  6. AMLODIPINE [Concomitant]
     Indication: BLOOD PRESSURE
     Route: 048
  7. METFORMIN [Concomitant]
     Indication: DIABETES MELLITUS
     Route: 048
  8. SIMVASTATIN [Concomitant]
     Indication: BLOOD CHOLESTEROL
     Route: 048

REACTIONS (4)
  - CHEST DISCOMFORT [None]
  - SINUSITIS [None]
  - DYSPNOEA [None]
  - ARTERIOSCLEROSIS [None]
